FAERS Safety Report 11023048 (Version 5)
Quarter: 2016Q1

REPORT INFORMATION
  Report Type: Report from Study
  Country: US (occurrence: US)
  Receive Date: 20150413
  Receipt Date: 20160125
  Transmission Date: 20160525
  Serious: Yes (Hospitalization, Other)
  Sender: FDA-Public Use
  Company Number: US-PURDUE PHARMA-USA-2015-0122397

PATIENT
  Age: 77 Year
  Sex: Female

DRUGS (5)
  1. OXYCONTIN [Suspect]
     Active Substance: OXYCODONE HYDROCHLORIDE
     Indication: OSTEOPOROSIS
     Dosage: 60 MG, BID
     Route: 048
     Dates: start: 20150324
  2. OXYCONTIN [Suspect]
     Active Substance: OXYCODONE HYDROCHLORIDE
     Indication: SPINAL COLUMN STENOSIS
     Dosage: 60 MG, BID
     Route: 048
     Dates: start: 201512
  3. OXYCONTIN [Suspect]
     Active Substance: OXYCODONE HYDROCHLORIDE
     Indication: NEUROPATHY PERIPHERAL
     Dosage: UNK
     Route: 048
     Dates: start: 1964
  4. OXYCONTIN [Suspect]
     Active Substance: OXYCODONE HYDROCHLORIDE
     Indication: PAIN
  5. OXYCONTIN [Suspect]
     Active Substance: OXYCODONE HYDROCHLORIDE
     Indication: OSTEOARTHRITIS
     Dosage: UNK
     Route: 048
     Dates: start: 200311

REACTIONS (11)
  - Neuropathy peripheral [Unknown]
  - Vulvovaginal mycotic infection [Unknown]
  - Pain [Unknown]
  - Animal bite [Recovered/Resolved]
  - Body height decreased [Unknown]
  - Productive cough [Unknown]
  - Bronchitis [Unknown]
  - Pneumonia [Not Recovered/Not Resolved]
  - Oral fungal infection [Unknown]
  - Bone atrophy [Not Recovered/Not Resolved]
  - Spinal disorder [Unknown]

NARRATIVE: CASE EVENT DATE: 2005
